FAERS Safety Report 10386363 (Version 1)
Quarter: 2014Q3

REPORT INFORMATION
  Report Type: Report from Study
  Country: US (occurrence: US)
  Receive Date: 20140815
  Receipt Date: 20140815
  Transmission Date: 20150326
  Serious: Yes (Other)
  Sender: FDA-Public Use
  Company Number: US-BIOGENIDEC-2014BI080762

PATIENT
  Sex: Female

DRUGS (1)
  1. AVONEX [Suspect]
     Active Substance: INTERFERON BETA-1A
     Indication: MULTIPLE SCLEROSIS
     Route: 030
     Dates: start: 19960601

REACTIONS (6)
  - Cervix carcinoma [Recovered/Resolved]
  - General symptom [Unknown]
  - Gait disturbance [Unknown]
  - Mobility decreased [Recovered/Resolved]
  - Drug intolerance [Recovered/Resolved]
  - Multiple sclerosis relapse [Recovered/Resolved]
